FAERS Safety Report 23802192 (Version 2)
Quarter: 2024Q3

REPORT INFORMATION
  Report Type: Spontaneous
  Country: US (occurrence: US)
  Receive Date: 20240501
  Receipt Date: 20240923
  Transmission Date: 20241016
  Serious: No
  Sender: ELI LILLY AND CO
  Company Number: US-ELI_LILLY_AND_COMPANY-US202404017588

PATIENT
  Age: 62 Year
  Sex: Female

DRUGS (1)
  1. VERZENIO [Suspect]
     Active Substance: ABEMACICLIB
     Indication: Breast cancer female
     Dosage: 150 MG, BID
     Route: 048
     Dates: start: 20221223

REACTIONS (4)
  - Vulvovaginal dryness [Not Recovered/Not Resolved]
  - Macrocytosis [Unknown]
  - Dyspareunia [Not Recovered/Not Resolved]
  - Leukopenia [Unknown]
